FAERS Safety Report 7199187-X (Version None)
Quarter: 2010Q4

REPORT INFORMATION
  Report Type: 
  Country: None (occurrence: None)
  Receive Date: 20101215
  Receipt Date: 20101130
  Transmission Date: 20110411
  Serious: Yes (Hospitalization, Other)
  Sender: FDA-Public Use
  Company Number: 2010P1002756

PATIENT
  Age: 60 Year
  Sex: Male
  Weight: 90.9 kg

DRUGS (13)
  1. AMITRIPTYLINE (NO PREF. NAME) [Suspect]
     Indication: DEPRESSION
     Dosage: 75 MG;
  2. FLUPHENAZINE [Suspect]
     Indication: DEPRESSION
     Dosage: 8 MG;
  3. CISPLATIN [Suspect]
     Indication: SARCOMA
     Dosage: 100 MG/M**2;DAYS 1 AND 2; IV
     Route: 042
     Dates: start: 20090219, end: 20100220
  4. HYDROCHLOROTHIAZIDE [Suspect]
     Dosage: 25 MG, PO
     Route: 048
     Dates: end: 20090222
  5. RAMIPRIL [Concomitant]
  6. AMLODIPINE [Concomitant]
  7. BIPERIDEN HYDROCHLORIDE TAB [Concomitant]
  8. PHENYTOIN [Concomitant]
  9. BARBEXACLONE [Concomitant]
  10. ADRIAMYCIN PFS [Concomitant]
  11. CARDIOXANE [Concomitant]
  12. BACTRIM [Concomitant]
  13. GRANULOCYTE GROTH FACTORS [Concomitant]

REACTIONS (4)
  - COMA [None]
  - HYPOKALAEMIA [None]
  - INAPPROPRIATE ANTIDIURETIC HORMONE SECRETION [None]
  - RESPIRATORY ALKALOSIS [None]
